FAERS Safety Report 17034664 (Version 1)
Quarter: 2019Q4

REPORT INFORMATION
  Report Type: Spontaneous
  Country: US (occurrence: US)
  Receive Date: 20191115
  Receipt Date: 20191115
  Transmission Date: 20200122
  Serious: No
  Sender: FDA-Public Use
  Company Number: US-009507513-1910USA012387

PATIENT
  Age: 72 Year
  Sex: Male

DRUGS (3)
  1. CYCLOPHOSPHAMIDE (+) DOXORUBICIN (+) PREDNISOLONE (+) RITUXIMAB (+) VI [Concomitant]
     Indication: DIFFUSE LARGE B-CELL LYMPHOMA STAGE IV
     Dosage: UNK
     Dates: start: 201808, end: 201811
  2. PRINIVIL [Suspect]
     Active Substance: LISINOPRIL
     Indication: CARDIAC FAILURE CHRONIC
     Dosage: 20 MILLIGRAM, QD
     Route: 048
     Dates: start: 201901
  3. PRINIVIL [Suspect]
     Active Substance: LISINOPRIL
     Indication: HYPERTENSION
     Dosage: 10 MILLIGRAM, QD
     Route: 048
     Dates: end: 201901

REACTIONS (1)
  - Treatment failure [Unknown]

NARRATIVE: CASE EVENT DATE: 2019
